FAERS Safety Report 24215601 (Version 1)
Quarter: 2024Q3

REPORT INFORMATION
  Report Type: Spontaneous
  Country: FR (occurrence: FR)
  Receive Date: 20240816
  Receipt Date: 20240816
  Transmission Date: 20241016
  Serious: Yes (Death, Other)
  Sender: AUROBINDO
  Company Number: FR-AFSSAPS-PA2024001306

PATIENT
  Age: 77 Year
  Sex: Male
  Weight: 53.6 kg

DRUGS (1)
  1. TERBINAFINE HYDROCHLORIDE [Suspect]
     Active Substance: TERBINAFINE HYDROCHLORIDE
     Indication: Onychomycosis
     Dosage: UNK
     Route: 048
     Dates: start: 20231201, end: 20231229

REACTIONS (2)
  - Vanishing bile duct syndrome [Fatal]
  - Cholestasis [Not Recovered/Not Resolved]

NARRATIVE: CASE EVENT DATE: 20240201
